FAERS Safety Report 14728620 (Version 1)
Quarter: 2018Q2

REPORT INFORMATION
  Report Type: Spontaneous
  Country: US (occurrence: US)
  Receive Date: 20180402
  Receipt Date: 20180402
  Transmission Date: 20180711
  Serious: No
  Sender: FDA-Public Use
  Company Number: None

PATIENT
  Age: 61 Year
  Sex: Female
  Weight: 72 kg

DRUGS (1)
  1. IV KETAMINE LOW DOSE [Suspect]
     Active Substance: KETAMINE

REACTIONS (14)
  - Abdominal pain [None]
  - Pain [None]
  - Drug intolerance [None]
  - Muscular weakness [None]
  - Tunnel vision [None]
  - Paraesthesia [None]
  - Metamorphopsia [None]
  - Drug ineffective [None]
  - Diplopia [None]
  - Hypoaesthesia [None]
  - Nausea [None]
  - Vomiting [None]
  - Dysstasia [None]
  - Dizziness [None]

NARRATIVE: CASE EVENT DATE: 20180312
